FAERS Safety Report 5206017-1 (Version None)
Quarter: 2007Q1

REPORT INFORMATION
  Report Type: 
  Country: None (occurrence: None)
  Receive Date: 20070108
  Receipt Date: 20061227
  Transmission Date: 20070707
  Serious: Yes (Other)
  Sender: FDA-Public Use
  Company Number: HQWYE940213DEC06

PATIENT
  Age: 28 Year
  Sex: Female

DRUGS (2)
  1. OSTELUC (ETODOLAC, CAPSULE) [Suspect]
     Indication: OSTEOARTHRITIS
     Dosage: 400 MG 1X PER 1 DAY; ORAL
     Route: 048
     Dates: start: 20060522, end: 20060909
  2. SELBEX (TEPRENONE) [Concomitant]

REACTIONS (5)
  - ALANINE AMINOTRANSFERASE INCREASED [None]
  - ASPARTATE AMINOTRANSFERASE INCREASED [None]
  - BLOOD PHOSPHORUS ABNORMAL [None]
  - HEPATIC FUNCTION ABNORMAL [None]
  - PYREXIA [None]
